FAERS Safety Report 9701265 (Version 3)
Quarter: 2015Q3

REPORT INFORMATION
  Report Type: Spontaneous
  Country: US (occurrence: US)
  Receive Date: 20131121
  Receipt Date: 20150803
  Transmission Date: 20151125
  Serious: Yes (Hospitalization)
  Sender: FDA-Public Use
  Company Number: US-GILEAD-2008-0016027

PATIENT
  Age: 78 Year
  Sex: Female
  Weight: 59.87 kg

DRUGS (18)
  1. VENTAVIS [Concomitant]
     Active Substance: ILOPROST
  2. COUMADIN [Concomitant]
     Active Substance: WARFARIN SODIUM
  3. SINGULAIR [Concomitant]
     Active Substance: MONTELUKAST SODIUM
  4. MG LACTATE [Concomitant]
  5. COREG [Concomitant]
     Active Substance: CARVEDILOL
  6. METOLAZONE. [Concomitant]
     Active Substance: METOLAZONE
  7. ALBUTEROL. [Concomitant]
     Active Substance: ALBUTEROL
  8. ZOCOR [Concomitant]
     Active Substance: SIMVASTATIN
  9. LETAIRIS [Suspect]
     Active Substance: AMBRISENTAN
     Indication: PULMONARY ARTERIAL HYPERTENSION
     Route: 048
     Dates: start: 200710, end: 200803
  10. VIAGRA [Concomitant]
     Active Substance: SILDENAFIL CITRATE
  11. NEXIUM [Concomitant]
     Active Substance: ESOMEPRAZOLE MAGNESIUM
  12. SYNTHROID [Concomitant]
     Active Substance: LEVOTHYROXINE SODIUM
  13. LEXAPRO [Concomitant]
     Active Substance: ESCITALOPRAM OXALATE
  14. XANAX [Concomitant]
     Active Substance: ALPRAZOLAM
  15. POTASSIUM [Concomitant]
     Active Substance: POTASSIUM
  16. NORVASC [Concomitant]
     Active Substance: AMLODIPINE BESYLATE
  17. PREDNISONE. [Concomitant]
     Active Substance: PREDNISONE
  18. LASIX [Concomitant]
     Active Substance: FUROSEMIDE

REACTIONS (2)
  - Fluid retention [Recovered/Resolved]
  - Oedema peripheral [Recovered/Resolved]

NARRATIVE: CASE EVENT DATE: 200802
